FAERS Safety Report 7480824-7 (Version None)
Quarter: 2011Q2

REPORT INFORMATION
  Report Type: 
  Country: None (occurrence: None)
  Receive Date: 20110506
  Receipt Date: 20110426
  Transmission Date: 20111010
  Serious: Yes (Death)
  Sender: FDA-Public Use
  Company Number: EU-2011-10073

PATIENT
  Age: 61 Year
  Sex: Male

DRUGS (9)
  1. SIMVASTATIN [Concomitant]
  2. LANTUS [Concomitant]
  3. ACFOL (FOLIC ACID) [Concomitant]
  4. CILOSTAZOL [Suspect]
     Indication: PERIPHERAL ARTERIAL OCCLUSIVE DISEASE
     Dosage: 200 MG MILLIGRAM9S), DAILY DOSE, ORAL
     Route: 048
     Dates: start: 20110301
  5. PLAVIX [Concomitant]
  6. FERO-GRADUMET (FERROUS SULFATE) [Concomitant]
  7. OMEPRAZOLE [Concomitant]
  8. NOVONORM (REPAGLINIDE) [Concomitant]
  9. HEMOVAS (PENTOXIFYLLINE) [Concomitant]

REACTIONS (1)
  - CARDIO-RESPIRATORY ARREST [None]
